FAERS Safety Report 8588842-2 (Version None)
Quarter: 2012Q3

REPORT INFORMATION
  Report Type: 
  Country: None (occurrence: None)
  Receive Date: 20120813
  Receipt Date: 20120809
  Transmission Date: 20120928
  Serious: Yes (Other)
  Sender: FDA-Public Use
  Company Number: GB-ASTRAZENECA-2010SE34107

PATIENT
  Age: 71 Year
  Sex: Female

DRUGS (28)
  1. SEROQUEL [Suspect]
     Route: 048
     Dates: start: 20120106
  2. KLONOPIN [Concomitant]
     Dosage: 1
     Dates: start: 20110413
  3. KLONOPIN [Concomitant]
     Dosage: 1
     Dates: start: 20110413
  4. KLONOPIN [Concomitant]
     Route: 048
     Dates: start: 20120106
  5. HYDROXYZIN [Concomitant]
     Dosage: 25
     Dates: start: 20110413
  6. TRAZODONE HYDROCHLORIDE [Concomitant]
     Indication: INSOMNIA
     Route: 048
     Dates: start: 20050907
  7. BISCODYL [Concomitant]
     Dosage: 5
     Dates: start: 20110413
  8. CELEXA [Concomitant]
     Indication: DEPRESSION
     Route: 048
     Dates: start: 20050907
  9. NAPROSYN [Concomitant]
     Dosage: 250 TO 500 MG PO BID PRN
     Route: 048
     Dates: start: 19950125
  10. LUNESTA [Concomitant]
     Dates: end: 20090425
  11. LISINOPRIL [Concomitant]
     Dates: start: 20120106
  12. SEROQUEL [Suspect]
     Route: 048
  13. NORVASC [Concomitant]
     Dates: start: 20120106
  14. ASPIRIN [Concomitant]
     Dates: start: 20110413
  15. COZAAR [Concomitant]
     Route: 048
     Dates: start: 20120106
  16. KLONOPIN [Concomitant]
     Route: 048
     Dates: start: 20120106
  17. RISPERDAL [Concomitant]
     Indication: PSYCHOTIC DISORDER
     Dates: start: 20050907
  18. NORVASC [Concomitant]
     Dosage: 10
     Dates: start: 20110413
  19. CIPROFLOXACIN [Concomitant]
     Dosage: 500
     Dates: start: 20110413
  20. KLONOPIN [Concomitant]
     Indication: ANXIETY
     Dates: start: 20050907
  21. CLOPIDOG [Concomitant]
     Dates: start: 20110413
  22. ZOLOFT [Concomitant]
     Dates: end: 20050907
  23. LOPRESSOR [Concomitant]
     Dates: start: 20120106
  24. PLAVIX [Concomitant]
     Dates: start: 20120106
  25. KLONOPIN [Concomitant]
     Indication: AGITATION
     Dates: start: 20050907
  26. GLYBUR/GLYBURIDE [Concomitant]
     Dates: start: 20110413
  27. PREDNISONE TAB [Concomitant]
     Route: 048
     Dates: start: 19950125
  28. OMEPRAZOLE [Concomitant]
     Dates: start: 20120106

REACTIONS (3)
  - DYSKINESIA [None]
  - SPEECH DISORDER [None]
  - TARDIVE DYSKINESIA [None]
